FAERS Safety Report 24617844 (Version 1)
Quarter: 2024Q4

REPORT INFORMATION
  Report Type: Spontaneous
  Country: GB (occurrence: GB)
  Receive Date: 20241114
  Receipt Date: 20241114
  Transmission Date: 20250114
  Serious: Yes (Other)
  Sender: TEVA
  Company Number: None

PATIENT
  Age: 60 Year
  Sex: Male
  Weight: 78 kg

DRUGS (2)
  1. SIMVASTATIN [Suspect]
     Active Substance: SIMVASTATIN
     Indication: Blood cholesterol
     Dosage: NIGHT
     Route: 065
     Dates: start: 20241001, end: 20241003
  2. CANDESARTAN [Concomitant]
     Active Substance: CANDESARTAN
     Indication: Hypertension

REACTIONS (1)
  - Muscular weakness [Recovered/Resolved]

NARRATIVE: CASE EVENT DATE: 20241001
